FAERS Safety Report 10121373 (Version 2)
Quarter: 2014Q2

REPORT INFORMATION
  Report Type: Spontaneous
  Country: IT (occurrence: IT)
  Receive Date: 20140425
  Receipt Date: 20140520
  Transmission Date: 20141212
  Serious: Yes (Hospitalization)
  Sender: FDA-Public Use
  Company Number: IT-ASTRAZENECA-2014SE26698

PATIENT
  Age: 33590 Day
  Sex: Female

DRUGS (5)
  1. ZESTORETIC [Suspect]
     Dosage: 20+12.5 MG
     Route: 048
     Dates: start: 20140101, end: 20140328
  2. THEO-DUR [Concomitant]
  3. PANTORC [Concomitant]
  4. CARDIASPIRIN [Concomitant]
  5. TORVAST [Concomitant]

REACTIONS (1)
  - Hyponatraemia [Recovered/Resolved]
